FAERS Safety Report 23194844 (Version 3)
Quarter: 2023Q4

REPORT INFORMATION
  Report Type: Spontaneous
  Country: US (occurrence: US)
  Receive Date: 20231117
  Receipt Date: 20231211
  Transmission Date: 20240110
  Serious: Yes (Life-Threatening, Hospitalization, Other)
  Sender: FDA-Public Use
  Company Number: US-Accord-390110

PATIENT
  Age: 15 Year
  Sex: Female
  Weight: 96 kg

DRUGS (9)
  1. METHOTREXATE [Interacting]
     Active Substance: METHOTREXATE
     Indication: B-cell type acute leukaemia
     Dosage: STARTING AT A DOSE OF 100 MG/M2/DAY AND ESCALATING BY 50 MG/M2 ON DAYS 1, 11, 21, 31, AND 41
     Route: 042
  2. ESOMEPRAZOLE [Interacting]
     Active Substance: ESOMEPRAZOLE
     Indication: Gastrooesophageal reflux disease
  3. PEGASPARGASE [Interacting]
     Active Substance: PEGASPARGASE
     Indication: B-cell type acute leukaemia
     Dosage: 2500 IU/M2 /DOSE
  4. PEGASPARGASE [Interacting]
     Active Substance: PEGASPARGASE
     Indication: Central nervous system leukaemia
     Dosage: 2500 IU/M2 /DOSE
  5. METHOTREXATE [Interacting]
     Active Substance: METHOTREXATE
     Indication: B-cell type acute leukaemia
     Dosage: STARTING AT A DOSE OF 100 MG/M2/DAY AND ESCALATING BY 50 MG/M2 ON DAYS 1, 11, 21, 31, AND 41
     Route: 042
  6. METHOTREXATE [Interacting]
     Active Substance: METHOTREXATE
     Indication: B-cell type acute leukaemia
     Dosage: STARTING AT A DOSE OF 100 MG/M2/DAY AND ESCALATING BY 50 MG/M2 ON DAYS 1, 11, 21, 31, AND 41
     Route: 042
  7. METHOTREXATE [Interacting]
     Active Substance: METHOTREXATE
     Indication: B-cell type acute leukaemia
     Dosage: CAPIZZI CYCLE, STARTING AT A DOSE OF 100 MG/M2/DAY
     Route: 042
  8. METHOTREXATE [Interacting]
     Active Substance: METHOTREXATE
     Indication: B-cell type acute leukaemia
     Dosage: STARTING AT A DOSE OF 100 MG/M2/DAY AND ESCALATING BY 50 MG/M2 ON DAYS 1, 11, 21, 31, AND 41
     Route: 042
  9. METHOTREXATE [Interacting]
     Active Substance: METHOTREXATE
     Indication: Central nervous system leukaemia
     Dosage: STARTING AT A DOSE OF 100 MG/M2/DAY AND ESCALATING BY 50 MG/M2 ON DAYS 1, 11, 21, 31, AND 41
     Route: 042

REACTIONS (10)
  - Drug clearance decreased [Unknown]
  - Ascites [Recovered/Resolved]
  - Potentiating drug interaction [Unknown]
  - Toxicity to various agents [Recovered/Resolved]
  - Pancreatitis [Recovered/Resolved]
  - Acute hepatic failure [Recovered/Resolved]
  - Acute kidney injury [Recovered/Resolved]
  - Multiple organ dysfunction syndrome [Recovered/Resolved]
  - Hepatic steatosis [Recovering/Resolving]
  - Chemotherapeutic drug level increased [Recovered/Resolved]
